FAERS Safety Report 6264560-0 (Version None)
Quarter: 2009Q3

REPORT INFORMATION
  Report Type: 
  Country: None (occurrence: None)
  Receive Date: 20090708
  Receipt Date: 20090629
  Transmission Date: 20100115
  Serious: Yes (Death, Life-Threatening, Other)
  Sender: FDA-Public Use
  Company Number: 2001002376-FJ

PATIENT
  Age: 63 Year
  Sex: Female
  Weight: 40 kg

DRUGS (12)
  1. PROGRAF [Suspect]
     Indication: LIVER TRANSPLANT
     Dosage: SEE IMAGE, ORAL
     Route: 048
     Dates: end: 19990615
  2. PROGRAF [Suspect]
     Indication: LIVER TRANSPLANT
     Dosage: SEE IMAGE, ORAL
     Route: 048
     Dates: start: 19990616, end: 19991109
  3. PROGRAF [Suspect]
     Indication: LIVER TRANSPLANT
     Dosage: SEE IMAGE, ORAL
     Route: 048
     Dates: start: 19991110, end: 20000215
  4. PROGRAF [Suspect]
     Indication: LIVER TRANSPLANT
     Dosage: SEE IMAGE, ORAL
     Route: 048
     Dates: start: 20000216, end: 20000905
  5. PROGRAF [Suspect]
     Indication: LIVER TRANSPLANT
     Dosage: SEE IMAGE, ORAL
     Route: 048
     Dates: start: 20000906, end: 20001114
  6. PROGRAF [Suspect]
     Indication: LIVER TRANSPLANT
     Dosage: SEE IMAGE, ORAL
     Route: 048
     Dates: start: 20001115, end: 20010514
  7. PROGRAF [Suspect]
     Indication: LIVER TRANSPLANT
     Dosage: SEE IMAGE, ORAL
     Route: 048
     Dates: start: 19990224
  8. PROGRAF [Suspect]
     Indication: LIVER TRANSPLANT
     Dosage: SEE IMAGE, ORAL
     Route: 048
     Dates: start: 20010610
  9. CALCITRIOL [Concomitant]
  10. METHYLPREDNISOLONE [Concomitant]
  11. DIGESTIVE ENZYMES (BETAINE HYDROCHLORIDE, BROMELAINS, CELLULASE, PAPAI [Concomitant]
  12. URSODESOXYCHOLIC ACID [Concomitant]

REACTIONS (10)
  - CHOLANGITIS [None]
  - DECREASED APPETITE [None]
  - DEHYDRATION [None]
  - HEPATIC FAILURE [None]
  - INFECTION [None]
  - LIVER ABSCESS [None]
  - NEPHROPATHY [None]
  - PORTAL VEIN THROMBOSIS [None]
  - PYREXIA [None]
  - THROMBOCYTOPENIA [None]
